FAERS Safety Report 12535370 (Version 3)
Quarter: 2020Q2

REPORT INFORMATION
  Report Type: Spontaneous
  Country: GB (occurrence: GB)
  Receive Date: 20160707
  Receipt Date: 20200512
  Transmission Date: 20200713
  Serious: Yes (Hospitalization, Other)
  Sender: FDA-Public Use
  Company Number: GB-AUROBINDO-AUR-APL-2016-08552

PATIENT
  Sex: Male

DRUGS (6)
  1. PAXIL [Suspect]
     Active Substance: PAROXETINE HYDROCHLORIDE
     Indication: PRODUCT USED FOR UNKNOWN INDICATION
     Dosage: UNK
     Route: 065
     Dates: start: 19970916
  2. PROCYCLIDINE [Concomitant]
     Active Substance: PROCYCLIDINE
     Indication: PRODUCT USED FOR UNKNOWN INDICATION
     Dosage: 5 MG, 3 TIMES A DAY
     Route: 065
  3. PAROXETINE TABLETS 20 MG [Suspect]
     Active Substance: PAROXETINE HYDROCHLORIDE
     Indication: BIPOLAR DISORDER
     Dosage: 20 MG, QD
     Route: 065
     Dates: start: 19971113
  4. LITHIUM CARBONATE. [Concomitant]
     Active Substance: LITHIUM CARBONATE
     Indication: PRODUCT USED FOR UNKNOWN INDICATION
     Dosage: 40 MG, ONCE A DAY
     Route: 065
  5. SEROXAT [Suspect]
     Active Substance: PAROXETINE HYDROCHLORIDE
     Indication: PRODUCT USED FOR UNKNOWN INDICATION
     Dosage: UNK
     Route: 065
     Dates: start: 19970916
  6. ZOPICLONE [Concomitant]
     Active Substance: ZOPICLONE
     Indication: PRODUCT USED FOR UNKNOWN INDICATION
     Dosage: 7.5 MG, UNKNOWN
     Route: 065

REACTIONS (33)
  - Aggression [Unknown]
  - Mania [Unknown]
  - Insomnia [Unknown]
  - Flushing [Unknown]
  - Fatigue [Unknown]
  - Depressed mood [Unknown]
  - Disturbance in attention [Unknown]
  - Energy increased [Unknown]
  - Malaise [Unknown]
  - Suicidal ideation [Unknown]
  - Dyskinesia [Unknown]
  - Mood altered [Unknown]
  - Pain [Unknown]
  - Panic attack [Unknown]
  - Drug withdrawal syndrome [Unknown]
  - Dizziness [Unknown]
  - Agitation [Unknown]
  - Anger [Unknown]
  - Paraesthesia [Unknown]
  - Restlessness [Unknown]
  - Headache [Unknown]
  - Skin reaction [Unknown]
  - Personality change [Unknown]
  - Suicide attempt [Unknown]
  - Tremor [Unknown]
  - Decreased appetite [Unknown]
  - Burning sensation [Unknown]
  - Rash [Unknown]
  - Asthenia [Unknown]
  - Head titubation [Unknown]
  - Irritability [Unknown]
  - Anxiety [Unknown]
  - Hypoaesthesia [Unknown]

NARRATIVE: CASE EVENT DATE: 199712
